FAERS Safety Report 25988730 (Version 1)
Quarter: 2025Q4

REPORT INFORMATION
  Report Type: Spontaneous
  Country: US (occurrence: US)
  Receive Date: 20251103
  Receipt Date: 20251103
  Transmission Date: 20260117
  Serious: No
  Sender: BIOGEN
  Company Number: US-BIOGEN-2019BI00742772

PATIENT
  Age: 70 Year
  Sex: Male

DRUGS (2)
  1. TYSABRI [Suspect]
     Active Substance: NATALIZUMAB
     Indication: Multiple sclerosis
     Dates: start: 20071205
  2. TYSABRI [Suspect]
     Active Substance: NATALIZUMAB

REACTIONS (3)
  - Prescribed underdose [Unknown]
  - Dehydration [Unknown]
  - Nasopharyngitis [Unknown]
